FAERS Safety Report 6358957-8 (Version None)
Quarter: 2009Q3

REPORT INFORMATION
  Report Type: 
  Country: None (occurrence: None)
  Receive Date: 20090914
  Receipt Date: 20090909
  Transmission Date: 20100115
  Serious: Yes (Life-Threatening, Other)
  Sender: FDA-Public Use
  Company Number: GB-EBEWE-1343OXALI09

PATIENT
  Age: 53 Year
  Sex: Female
  Weight: 90 kg

DRUGS (5)
  1. OXALIPLATIN [Suspect]
     Indication: COLON CANCER
     Dosage: 130 MG/M2, 1 DAY, IV
     Dates: start: 20070726, end: 20070726
  2. CAPECITABINE [Suspect]
     Indication: COLON CANCER
     Dosage: 1000 MG/M2, BID, ORAL
     Route: 048
     Dates: start: 20070726, end: 20070809
  3. DEXAMETHASONE [Concomitant]
  4. DOMPERIDONE [Concomitant]
  5. GRANISETRON HCL [Concomitant]

REACTIONS (1)
  - THROMBOTIC STROKE [None]
